FAERS Safety Report 5575701-2 (Version None)
Quarter: 2007Q4

REPORT INFORMATION
  Report Type: 
  Country: None (occurrence: None)
  Receive Date: 20071130
  Receipt Date: 20070926
  Transmission Date: 20080405
  Serious: No
  Sender: FDA-Public Use
  Company Number: US200709006134

PATIENT
  Age: 68 Year
  Sex: Female
  Weight: 72.6 kg

DRUGS (8)
  1. BYETTA [Suspect]
     Indication: TYPE 2 DIABETES MELLITUS
     Dosage: 5 UG, 2/D, SUBCUTANEOUS ; 10 UG, 2/D, SUBCUTANEOUS
     Route: 058
     Dates: start: 20060101, end: 20060101
  2. BYETTA [Suspect]
     Indication: TYPE 2 DIABETES MELLITUS
     Dosage: 5 UG, 2/D, SUBCUTANEOUS ; 10 UG, 2/D, SUBCUTANEOUS
     Route: 058
     Dates: start: 20060101
  3. METFORMIN /00082701/ (METFORMIN) [Concomitant]
  4. GLIMEPIRIDE [Concomitant]
  5. GLYBURIDE [Concomitant]
  6. FOSAMAX [Concomitant]
  7. CALCIUM (CALCIUM) [Concomitant]
  8. B12 (CYANOCOBALAMIN-TANNIN COMPLEX) [Concomitant]

REACTIONS (8)
  - ANAEMIA [None]
  - BLOOD GLUCOSE DECREASED [None]
  - BLOOD GLUCOSE INCREASED [None]
  - DIZZINESS [None]
  - FEELING ABNORMAL [None]
  - GASTROINTESTINAL HAEMORRHAGE [None]
  - POLYP [None]
  - WEIGHT DECREASED [None]
